FAERS Safety Report 23383076 (Version 1)
Quarter: 2024Q1

REPORT INFORMATION
  Report Type: Report from Study
  Country: IT (occurrence: IT)
  Receive Date: 20240109
  Receipt Date: 20240109
  Transmission Date: 20240410
  Serious: Yes (Hospitalization)
  Sender: FDA-Public Use
  Company Number: None

PATIENT
  Age: 43 Year
  Sex: Female

DRUGS (2)
  1. ESOMEPRAZOLE [Suspect]
     Active Substance: ESOMEPRAZOLE
     Indication: Hyperchlorhydria
     Dosage: 1 DOSAGE FORM (1 TOTAL, ORAL)
     Route: 048
     Dates: start: 20231129, end: 20231129
  2. KETOPROFEN LYSINE [Suspect]
     Active Substance: KETOPROFEN LYSINE
     Indication: Pain
     Dosage: 1 DOSAGE FORM (1 TOTAL, ORAL)
     Route: 048
     Dates: start: 20231129, end: 20231129

REACTIONS (3)
  - Eyelid oedema [Recovering/Resolving]
  - Circumoral oedema [Recovering/Resolving]
  - Rash [Recovering/Resolving]

NARRATIVE: CASE EVENT DATE: 20231129
